FAERS Safety Report 7712130-7 (Version None)
Quarter: 2011Q3

REPORT INFORMATION
  Report Type: 
  Country: None (occurrence: None)
  Receive Date: 20110826
  Receipt Date: 20110817
  Transmission Date: 20111222
  Serious: Yes (Hospitalization)
  Sender: FDA-Public Use
  Company Number: CA-JNJFOC-20110809839

PATIENT
  Sex: Male

DRUGS (5)
  1. VITAMIN D [Concomitant]
  2. DEXILANT [Concomitant]
  3. SIMPONI [Suspect]
     Indication: PSORIATIC ARTHROPATHY
     Route: 058
     Dates: start: 20110201, end: 20110701
  4. CHLOROQUINE [Concomitant]
     Dosage: 5/7 DAYS
  5. FLAX SEED OIL [Concomitant]

REACTIONS (3)
  - PERONEAL NERVE PALSY [None]
  - HYPOAESTHESIA [None]
  - PARAESTHESIA [None]
